FAERS Safety Report 7708457-5 (Version None)
Quarter: 2011Q3

REPORT INFORMATION
  Report Type: 
  Country: None (occurrence: None)
  Receive Date: 20110825
  Receipt Date: 20110816
  Transmission Date: 20111222
  Serious: Yes (Hospitalization, Other)
  Sender: FDA-Public Use
  Company Number: US-BAYER-2011-035476

PATIENT
  Age: 38 Year
  Sex: Female
  Weight: 92.517 kg

DRUGS (7)
  1. PROPOXYPHENE NAPSYLATE AND ACETAMINOPHEN [Concomitant]
     Dosage: UNK
     Dates: start: 20080302
  2. GEMFIBROZIL [Concomitant]
     Indication: BLOOD CHOLESTEROL INCREASED
     Dosage: UNK
     Dates: start: 20090401
  3. METROPOLOL [Concomitant]
     Dosage: UNK
     Dates: start: 20090401
  4. YAZ [Suspect]
  5. FEXOFENADINE [Concomitant]
     Indication: MULTIPLE ALLERGIES
     Dosage: UNK
     Dates: start: 20080801
  6. YAZ [Suspect]
     Indication: PREMENSTRUAL SYNDROME
  7. YAZ [Suspect]
     Indication: CONTRACEPTION
     Dosage: UNK
     Dates: start: 20070423, end: 20090916

REACTIONS (3)
  - ARRHYTHMIA [None]
  - INJURY [None]
  - TACHYCARDIA [None]
